FAERS Safety Report 12553132 (Version 1)
Quarter: 2016Q3

REPORT INFORMATION
  Report Type: Spontaneous
  Country: US (occurrence: US)
  Receive Date: 20160713
  Receipt Date: 20160713
  Transmission Date: 20161109
  Serious: Yes (Death, Life-Threatening, Other)
  Sender: FDA-Public Use
  Company Number: US-DRREDDYS-USA/USA/16/0081389

PATIENT
  Age: 52 Year
  Sex: Female

DRUGS (1)
  1. ZOLEDRONIC ACID. [Suspect]
     Active Substance: ZOLEDRONIC ACID
     Indication: OSTEOPOROSIS
     Route: 065

REACTIONS (6)
  - Renal tubular necrosis [Unknown]
  - Mucocutaneous rash [Unknown]
  - Multiple organ dysfunction syndrome [Fatal]
  - Septic shock [Unknown]
  - Acute kidney injury [Unknown]
  - Fungal skin infection [Unknown]
